FAERS Safety Report 24971118 (Version 1)
Quarter: 2025Q1

REPORT INFORMATION
  Report Type: Spontaneous
  Country: US (occurrence: US)
  Receive Date: 20250214
  Receipt Date: 20250214
  Transmission Date: 20250409
  Serious: No
  Sender: BIOGEN
  Company Number: US-BIOGEN-2025BI01300461

PATIENT
  Sex: Male

DRUGS (3)
  1. TECFIDERA [Suspect]
     Active Substance: DIMETHYL FUMARATE
     Indication: Multiple sclerosis
     Route: 050
  2. AMPYRA [Concomitant]
     Active Substance: DALFAMPRIDINE
     Route: 050
  3. BOTOX [Concomitant]
     Active Substance: ONABOTULINUMTOXINA
     Route: 050

REACTIONS (1)
  - Multiple sclerosis [Unknown]
